FAERS Safety Report 4332432-4 (Version None)
Quarter: 2004Q1

REPORT INFORMATION
  Report Type: 
  Country: None (occurrence: None)
  Receive Date: 20040329
  Receipt Date: 20040107
  Transmission Date: 20041129
  Serious: No
  Sender: FDA-Public Use
  Company Number: 03P-163-0241450-00

PATIENT
  Age: 73 Year
  Sex: Female

DRUGS (17)
  1. HUMIRA [Suspect]
     Indication: RHEUMATOID ARTHRITIS
     Dosage: 40 MG, 1 IN 2 WK, SUBCUTANEOUS
     Route: 058
     Dates: start: 20030801
  2. METOPROLOL [Concomitant]
  3. HYDROCHLOROTHIAZIDE [Concomitant]
  4. NABUMETONE [Concomitant]
  5. PREDNISONE [Concomitant]
  6. LEFLUNOMIDE [Concomitant]
  7. RISEDRONATE SODIUM [Concomitant]
  8. MORPHINE [Concomitant]
  9. OXYCOCET [Concomitant]
  10. ASCORBIC ACID [Concomitant]
  11. POTASSIUM [Concomitant]
  12. PYRIDOXINE HYDROCHLORIDE [Concomitant]
  13. CYANOCOBALAMIN [Concomitant]
  14. GARLIC [Concomitant]
  15. ASPIRIN [Concomitant]
  16. ESTROVEN [Concomitant]
  17. CALCIUM [Concomitant]

REACTIONS (6)
  - COUGH [None]
  - DYSPNOEA [None]
  - JOINT SWELLING [None]
  - NAUSEA [None]
  - PYREXIA [None]
  - SINUSITIS [None]
